FAERS Safety Report 9474037 (Version 2)
Quarter: 2014Q2

REPORT INFORMATION
  Report Type: Spontaneous
  Country: JP (occurrence: JP)
  Receive Date: 20130823
  Receipt Date: 20140513
  Transmission Date: 20141212
  Serious: Yes (Other)
  Sender: FDA-Public Use
  Company Number: PHHY2013JP091470

PATIENT
  Age: 51 Year
  Sex: Male

DRUGS (3)
  1. EXFORGE [Suspect]
     Indication: HYPERTENSION
     Dosage: 1 DF, DAILY
     Route: 048
     Dates: start: 20101015
  2. PARIET [Concomitant]
     Dosage: UNK UKN, UNK
     Route: 048
  3. TS-1 [Concomitant]
     Dosage: UNK UKN, UNK
     Route: 048

REACTIONS (1)
  - Gynaecomastia [Recovered/Resolved]
